FAERS Safety Report 8452506-6 (Version None)
Quarter: 2012Q2

REPORT INFORMATION
  Report Type: 
  Country: None (occurrence: None)
  Receive Date: 20120620
  Receipt Date: 20120615
  Transmission Date: 20120825
  Serious: Yes (Other)
  Sender: FDA-Public Use
  Company Number: PHHY2012FR051872

PATIENT
  Sex: Female
  Weight: 55 kg

DRUGS (1)
  1. ZOLEDRONOC ACID [Suspect]
     Dosage: 5 MG, UNK
     Route: 042
     Dates: start: 20120403

REACTIONS (4)
  - ATRIAL FIBRILLATION [None]
  - HEMIANOPIA HOMONYMOUS [None]
  - CEREBRAL ISCHAEMIA [None]
  - ARRHYTHMIA [None]
